FAERS Safety Report 13080764 (Version 2)
Quarter: 2017Q1

REPORT INFORMATION
  Report Type: Spontaneous
  Country: None (occurrence: RU)
  Receive Date: 20170103
  Receipt Date: 20170103
  Transmission Date: 20170428
  Serious: Yes (Other)
  Sender: FDA-Public Use
  Company Number: RU-MERCK KGAA-1061455

PATIENT

DRUGS (1)
  1. NOVOTHYROX [Suspect]
     Active Substance: LEVOTHYROXINE SODIUM

REACTIONS (11)
  - Product formulation issue [None]
  - Autoimmune thyroiditis [None]
  - Euphoric mood [None]
  - Gait disturbance [None]
  - Anxiety [None]
  - Manufacturing materials issue [None]
  - Therapeutic response decreased [None]
  - Yellow skin [None]
  - Heart rate increased [None]
  - Insomnia [None]
  - Product packaging confusion [None]
